FAERS Safety Report 7757987-9 (Version None)
Quarter: 2011Q3

REPORT INFORMATION
  Report Type: 
  Country: None (occurrence: None)
  Receive Date: 20110919
  Receipt Date: 20110909
  Transmission Date: 20111222
  Serious: Yes (Hospitalization)
  Sender: FDA-Public Use
  Company Number: US-BIOGENIDEC-2011BI034739

PATIENT
  Sex: Female

DRUGS (2)
  1. AVONEX [Suspect]
     Route: 030
     Dates: start: 20110817
  2. AVONEX [Suspect]
     Indication: MULTIPLE SCLEROSIS
     Route: 030
     Dates: start: 20040720, end: 20100801

REACTIONS (5)
  - MULTIPLE SCLEROSIS RELAPSE [None]
  - DIABETES MELLITUS [None]
  - ASTHENIA [None]
  - THYROID DISORDER [None]
  - INFECTION [None]
